FAERS Safety Report 26042996 (Version 1)
Quarter: 2025Q4

REPORT INFORMATION
  Report Type: Spontaneous
  Country: PR (occurrence: PR)
  Receive Date: 20251113
  Receipt Date: 20251113
  Transmission Date: 20260117
  Serious: No
  Sender: ANI
  Company Number: PR-ANIPHARMA-2025-PR-000098

PATIENT
  Age: 70 Year
  Sex: Male
  Weight: 90.72 kg

DRUGS (6)
  1. CORTICOTROPIN [Suspect]
     Active Substance: CORTICOTROPIN
     Indication: Arthralgia
     Dosage: 40 UNITS ON DAY 1 AND 3, WEEKLY
     Dates: start: 20250917, end: 20251006
  2. LIDOCAINE [Concomitant]
     Active Substance: LIDOCAINE
  3. VITAMIN D3 [Concomitant]
     Active Substance: CHOLECALCIFEROL
  4. COLCHICINE [Concomitant]
     Active Substance: COLCHICINE
  5. ZYLOPRIM [Concomitant]
     Active Substance: ALLOPURINOL
  6. METHYLPREDNISOLONE [Concomitant]
     Active Substance: METHYLPREDNISOLONE

REACTIONS (1)
  - Drug ineffective [Recovered/Resolved]
